FAERS Safety Report 6027436-X (Version None)
Quarter: 2009Q1

REPORT INFORMATION
  Report Type: 
  Country: None (occurrence: None)
  Receive Date: 20090105
  Receipt Date: 20081222
  Transmission Date: 20090719
  Serious: Yes (Death, Other)
  Sender: FDA-Public Use
  Company Number: DE-MERCK-0812DEU00339

PATIENT
  Age: 14 Year
  Sex: Male

DRUGS (4)
  1. CANCIDAS [Suspect]
     Indication: ASPERGILLOSIS
     Route: 042
  2. CANCIDAS [Suspect]
     Route: 042
  3. VORICONAZOLE [Concomitant]
     Indication: ASPERGILLOSIS
     Route: 042
  4. VORICONAZOLE [Concomitant]
     Route: 042

REACTIONS (2)
  - CEREBRAL ASPERGILLOSIS [None]
  - DEATH [None]
